FAERS Safety Report 8590640-0 (Version None)
Quarter: 2012Q3

REPORT INFORMATION
  Report Type: 
  Country: None (occurrence: None)
  Receive Date: 20120813
  Receipt Date: 20120807
  Transmission Date: 20120928
  Serious: No
  Sender: FDA-Public Use
  Company Number: US-PFIZER INC-2012193757

PATIENT
  Age: 65 Year
  Sex: Female
  Weight: 49.887 kg

DRUGS (4)
  1. TRAMADOL HCL [Suspect]
     Indication: HERPES ZOSTER
     Dosage: UNK
     Dates: start: 20120729
  2. TRAMADOL HCL [Suspect]
     Dosage: 50 MG, 3X/DAY
     Dates: end: 20120101
  3. HYDROCODONE BITARTRATE + ACETAMINOPHEN [Suspect]
     Indication: HERPES ZOSTER
     Dosage: UNK
     Dates: start: 20120726, end: 20120101
  4. LYRICA [Suspect]
     Indication: HERPES ZOSTER
     Dosage: 50 MG, DAILY
     Dates: start: 20120802

REACTIONS (5)
  - DRUG INEFFECTIVE [None]
  - NERVOUSNESS [None]
  - DYSARTHRIA [None]
  - NAUSEA [None]
  - SOMNOLENCE [None]
